FAERS Safety Report 17980625 (Version 1)
Quarter: 2020Q3

REPORT INFORMATION
  Report Type: Spontaneous
  Country: FR (occurrence: FR)
  Receive Date: 20200704
  Receipt Date: 20200704
  Transmission Date: 20201103
  Serious: Yes (Hospitalization)
  Sender: FDA-Public Use
  Company Number: FR-TEVA-2020-FR-1794814

PATIENT
  Age: 54 Year
  Sex: Male
  Weight: 75 kg

DRUGS (15)
  1. OMEPRAZOLE. [Suspect]
     Active Substance: OMEPRAZOLE
     Route: 065
  2. ACUPAN [Suspect]
     Active Substance: NEFOPAM HYDROCHLORIDE
     Route: 065
  3. METFORMINE [Suspect]
     Active Substance: METFORMIN HYDROCHLORIDE
     Route: 065
  4. GAVISCON [Suspect]
     Active Substance: ALUMINUM HYDROXIDE\MAGNESIUM CARBONATE
     Route: 065
  5. LEVOTHYROX 75 MICROGRAMMES, COMPRIME SECABLE [Suspect]
     Active Substance: LEVOTHYROXINE SODIUM
     Dosage: FORM OF ADMIN. TEXT: BREAKABLE TABLET
     Route: 065
  6. DOLIPRANE [Suspect]
     Active Substance: ACETAMINOPHEN
     Route: 065
  7. KARDEGIC [Suspect]
     Active Substance: ASPIRIN DL-LYSINE
     Dosage: FORM OF ADMIN. TEXT : POWDER FOR ORAL SOLUTION IN SACHET?DOSE
     Route: 065
  8. BRILIQUE 90 MG, COMPRIME ORODISPERSIBLE [Suspect]
     Active Substance: TICAGRELOR
     Route: 065
  9. VOLTARENE (DICLOFENAC SODIUM) [Suspect]
     Active Substance: DICLOFENAC SODIUM
     Dosage: FORM OF ADMIN. TEXT : COATED EXTENDED RELEASE TABLET
     Route: 065
  10. AMLOR 10 MG, GELULE [Suspect]
     Active Substance: AMLODIPINE BESYLATE
     Route: 065
  11. TAHOR [Suspect]
     Active Substance: ATORVASTATIN CALCIUM
     Route: 065
  12. TOPALGIC L.P. 200 MG, COMPRIME A LIBERATION PROLONGEE [Suspect]
     Active Substance: TRAMADOL HYDROCHLORIDE
     Route: 065
  13. PAROEX [Suspect]
     Active Substance: CHLORHEXIDINE GLUCONATE
     Dosage: FORM OF ADMIN. TEXT : MOUTHWASH SOLUTION
     Route: 065
  14. COSIMPREL 5 MG/10 MG COMPRIME PELLICULE SECABLE [Suspect]
     Active Substance: BISOPROLOL FUMARATE\PERINDOPRIL ARGININE
     Dosage: FORM OF ADMIN. TEXT : TABLETS BREAKABLE FILM
     Route: 065
  15. CORTANCYL 20 MG, COMPRIME [Suspect]
     Active Substance: PREDNISONE
     Indication: BASEDOW^S DISEASE
     Dosage: 20 MG
     Route: 048
     Dates: start: 2010, end: 202003

REACTIONS (1)
  - Steroid diabetes [Recovered/Resolved with Sequelae]

NARRATIVE: CASE EVENT DATE: 2020
